FAERS Safety Report 5920042-4 (Version None)
Quarter: 2008Q4

REPORT INFORMATION
  Report Type: 
  Country: None (occurrence: None)
  Receive Date: 20081014
  Receipt Date: 20070813
  Transmission Date: 20090506
  Serious: Yes (Hospitalization)
  Sender: FDA-Public Use
  Company Number: 2005US001213

PATIENT
  Age: 43 Year
  Sex: Female

DRUGS (23)
  1. PROGRAF [Suspect]
     Indication: PROPHYLAXIS AGAINST TRANSPLANT REJECTION
     Dosage: 3 MG, BID, ORAL
     Route: 048
     Dates: start: 20050719
  2. MYCOPHENOLATE MOFETIL [Suspect]
     Indication: PROPHYLAXIS AGAINST TRANSPLANT REJECTION
     Dosage: 1000 MG, BID, ORAL
     Route: 048
     Dates: start: 20050720
  3. MEDROL [Suspect]
     Indication: PROPHYLAXIS AGAINST TRANSPLANT REJECTION
     Dosage: 10 MG, UID/QD, ORAL
     Route: 048
     Dates: start: 20040722
  4. SODIUM BICARBONATE IN PLASTIC CONTAINER [Concomitant]
  5. ADALAT [Concomitant]
  6. ASPIRIN [Concomitant]
  7. BACTRIM [Concomitant]
  8. PHOSLO [Concomitant]
  9. LASIX [Concomitant]
  10. CYTOVENE [Concomitant]
  11. LABETALOL HCL [Concomitant]
  12. PROTONIX [Concomitant]
  13. CIPRO [Concomitant]
  14. EPOETIN NOS (EPOETIN NOS) [Concomitant]
  15. INSULIN (INSULIN HUMAN) [Concomitant]
  16. LINEZOLID [Concomitant]
  17. LOPERAMIDE HCL (LOPERAMIDE HYDROCHLORIDE) [Concomitant]
  18. K-PHOS (POTASSIUM PHOSPHATE MONOBASIC) [Concomitant]
  19. NOVOLOG [Concomitant]
  20. LANTUS [Concomitant]
  21. KEFLEX [Concomitant]
  22. ARANESP [Concomitant]
  23. PANTOPRAZOLE SODIUM [Concomitant]

REACTIONS (9)
  - ABDOMINAL PAIN [None]
  - CYTOMEGALOVIRUS INFECTION [None]
  - DIARRHOEA [None]
  - HYPERGLYCAEMIA [None]
  - POSTOPERATIVE WOUND INFECTION [None]
  - PYREXIA [None]
  - VOMITING [None]
  - WOUND COMPLICATION [None]
  - WOUND INFECTION STAPHYLOCOCCAL [None]
